FAERS Safety Report 7767396-4 (Version None)
Quarter: 2011Q3

REPORT INFORMATION
  Report Type: 
  Country: None (occurrence: None)
  Receive Date: 20110922
  Receipt Date: 20100113
  Transmission Date: 20111222
  Serious: No
  Sender: FDA-Public Use
  Company Number: US-ASTRAZENECA-2010SE52815

PATIENT
  Age: 744 Month
  Sex: Female

DRUGS (3)
  1. ZYPREXA [Concomitant]
     Indication: DEPRESSION
     Route: 048
     Dates: start: 20010901
  2. SEROQUEL [Suspect]
     Route: 048
     Dates: start: 19991117
  3. PROLIXIN [Concomitant]
     Route: 030
     Dates: start: 19991117

REACTIONS (4)
  - BLOOD GLUCOSE INCREASED [None]
  - BRONCHITIS [None]
  - DIABETES MELLITUS [None]
  - CHRONIC OBSTRUCTIVE PULMONARY DISEASE [None]
